FAERS Safety Report 13236769 (Version 1)
Quarter: 2017Q1

REPORT INFORMATION
  Report Type: Spontaneous
  Country: US (occurrence: US)
  Receive Date: 20170215
  Receipt Date: 20170215
  Transmission Date: 20170428
  Serious: No
  Sender: FDA-Public Use
  Company Number: US-LANTHEUS-LMI-2016-00006

PATIENT
  Age: 64 Year
  Sex: Male
  Weight: 131 kg

DRUGS (5)
  1. DEFINITY [Suspect]
     Active Substance: PERFLUTREN
     Dosage: 1.3 ML DEFINITY DILUTED IN 8.7 ML NORMAL SALINE
     Route: 040
     Dates: start: 20160106, end: 20160106
  2. DEFINITY [Suspect]
     Active Substance: PERFLUTREN
     Dosage: 1.3 ML DEFINITY DILUTED IN 8.7 ML NORMAL SALINE
     Route: 040
     Dates: start: 20160106, end: 20160106
  3. DEFINITY [Suspect]
     Active Substance: PERFLUTREN
     Indication: ECHOCARDIOGRAM
     Dosage: 1.3 ML DEFINITY DILUTED IN 8.7 ML NORMAL SALINE
     Route: 040
     Dates: start: 20160106, end: 20160106
  4. DEFINITY [Suspect]
     Active Substance: PERFLUTREN
     Dosage: 1.3 ML DEFINITY DILUTED IN 8.7 ML NORMAL SALINE
     Route: 040
     Dates: start: 20160106, end: 20160106
  5. DEFINITY [Suspect]
     Active Substance: PERFLUTREN
     Dosage: 1.3 ML DEFINITY DILUTED IN 8.7 ML NORMAL SALINE
     Route: 040
     Dates: start: 20160106, end: 20160106

REACTIONS (2)
  - Pain in extremity [Recovered/Resolved]
  - Back pain [Recovered/Resolved]

NARRATIVE: CASE EVENT DATE: 20160106
